FAERS Safety Report 6643499-2 (Version None)
Quarter: 2010Q1

REPORT INFORMATION
  Report Type: 
  Country: None (occurrence: None)
  Receive Date: 20100319
  Receipt Date: 20100308
  Transmission Date: 20100710
  Serious: Yes (Hospitalization)
  Sender: FDA-Public Use
  Company Number: JP-AMGEN-US366995

PATIENT
  Sex: Female
  Weight: 48 kg

DRUGS (18)
  1. ENBREL [Suspect]
     Indication: RHEUMATOID ARTHRITIS
     Route: 058
     Dates: start: 20070125, end: 20080415
  2. ENBREL [Suspect]
     Route: 058
     Dates: start: 20080416, end: 20080708
  3. ENBREL [Suspect]
     Route: 058
     Dates: start: 20080709, end: 20080901
  4. AZULFIDINE [Suspect]
     Route: 048
     Dates: start: 20070112, end: 20070203
  5. AMLODIPINE [Concomitant]
     Route: 048
     Dates: start: 20070919, end: 20080904
  6. MUCOSTA [Concomitant]
     Route: 048
     Dates: end: 20080904
  7. ALLOPURINOL [Concomitant]
     Route: 048
     Dates: start: 20070801, end: 20080904
  8. PREDONINE [Concomitant]
     Indication: RHEUMATOID ARTHRITIS
     Route: 048
     Dates: end: 20070202
  9. PREDONINE [Concomitant]
     Route: 048
     Dates: start: 20070203, end: 20070228
  10. PREDONINE [Concomitant]
     Route: 048
     Dates: start: 20070301, end: 20070605
  11. PREDONINE [Concomitant]
     Route: 048
     Dates: start: 20070606, end: 20070731
  12. PREDONINE [Concomitant]
     Route: 048
     Dates: start: 20070801, end: 20071030
  13. PREDONINE [Concomitant]
     Route: 048
     Dates: start: 20071031, end: 20071225
  14. PREDONINE [Concomitant]
     Route: 048
     Dates: start: 20071226, end: 20080122
  15. PREDONINE [Concomitant]
     Route: 048
     Dates: start: 20080123, end: 20080219
  16. PREDONINE [Concomitant]
     Route: 048
     Dates: start: 20080220, end: 20080318
  17. PREDONINE [Concomitant]
     Route: 048
     Dates: start: 20080319, end: 20080513
  18. PREDONINE [Concomitant]
     Route: 048
     Dates: start: 20080101, end: 20080904

REACTIONS (5)
  - ERYTHEMA [None]
  - GENERALISED OEDEMA [None]
  - GLOMERULONEPHRITIS RAPIDLY PROGRESSIVE [None]
  - HAEMOLYTIC URAEMIC SYNDROME [None]
  - TOXIC SKIN ERUPTION [None]
